FAERS Safety Report 9523656 (Version 1)
Quarter: 2013Q3

REPORT INFORMATION
  Report Type: Spontaneous
  Country: US (occurrence: US)
  Receive Date: 20130913
  Receipt Date: 20130913
  Transmission Date: 20140515
  Serious: Yes (Other)
  Sender: FDA-Public Use
  Company Number: PHHY2013US098748

PATIENT
  Age: 19 Year
  Sex: Female

DRUGS (3)
  1. DEFEROXAMINE [Suspect]
     Indication: BLOOD IRON ABNORMAL
     Dosage: 20 MG/KG, DAILY (5 DAYS IN A WEEK )
     Route: 058
  2. DEFEROXAMINE [Suspect]
     Dosage: 20 MG/KG, DAILY (6 DAYS IN A WEEK )
     Route: 058
  3. DEFERASIROX [Suspect]
     Indication: IRON OVERLOAD
     Dosage: 30 MG/KG, DAILY
     Route: 048

REACTIONS (5)
  - Pre-eclampsia [Unknown]
  - Iron overload [Unknown]
  - Hepatic siderosis [Unknown]
  - Serum ferritin increased [Unknown]
  - Maternal exposure during pregnancy [Unknown]
